FAERS Safety Report 4424142-X (Version None)
Quarter: 2004Q3

REPORT INFORMATION
  Report Type: 
  Country: None (occurrence: None)
  Receive Date: 20040809
  Receipt Date: 20040726
  Transmission Date: 20050211
  Serious: No
  Sender: FDA-Public Use
  Company Number: 04H-044-0268313-00

PATIENT

DRUGS (3)
  1. LEUCOVORIN CALCIUM [Suspect]
     Indication: CHEMOTHERAPY
     Dosage: 90 MG, ONCE, INTRAVENOUS
     Route: 042
  2. UFT [Suspect]
     Indication: CHEMOTHERAPY
     Dosage: 250-300 MG/M2
  3. MITOMYCIN [Suspect]
     Indication: CHEMOTHERAPY
     Dosage: 7 MG/M2

REACTIONS (2)
  - DRUG TOXICITY [None]
  - NEUTROPENIC SEPSIS [None]
